FAERS Safety Report 4973946-3 (Version None)
Quarter: 2006Q2

REPORT INFORMATION
  Report Type: 
  Country: None (occurrence: None)
  Receive Date: 20060410
  Receipt Date: 20060331
  Transmission Date: 20061013
  Serious: Yes (Other)
  Sender: FDA-Public Use
  Company Number: 2006046155

PATIENT
  Sex: Female

DRUGS (12)
  1. ALPRAZOLAM [Suspect]
     Indication: SLEEP DISORDER
  2. NORVASC [Suspect]
     Indication: BLOOD PRESSURE
     Dosage: 5 MG
     Dates: start: 20050101
  3. LIPITOR [Suspect]
     Indication: ILL-DEFINED DISORDER
  4. LYRICA [Suspect]
     Indication: PAIN
     Dosage: 25 MG
  5. COREG [Suspect]
     Indication: BLOOD PRESSURE
     Dates: start: 20050101
  6. ANTIDEPRESSANTS (ANTIDEPRESSANTS) [Suspect]
     Indication: ILL-DEFINED DISORDER
  7. DIOVAN [Concomitant]
  8. HYDROCORTISONE [Concomitant]
  9. NASAL PREPARATIONS [Concomitant]
  10. ALBUTEROL [Concomitant]
  11. ATROVENT [Concomitant]
  12. ASPIRIN [Concomitant]

REACTIONS (15)
  - ADRENAL DISORDER [None]
  - BLOOD CHOLESTEROL INCREASED [None]
  - BLOOD PRESSURE INCREASED [None]
  - BURNING SENSATION [None]
  - DRUG INEFFECTIVE [None]
  - DYSPNOEA [None]
  - ERYTHEMA [None]
  - FEAR [None]
  - GLAUCOMA [None]
  - HEART RATE INCREASED [None]
  - HYPERTENSION [None]
  - INSOMNIA [None]
  - NEUROPATHY PERIPHERAL [None]
  - OEDEMA PERIPHERAL [None]
  - WHEEZING [None]
